FAERS Safety Report 5012475-8 (Version None)
Quarter: 2006Q2

REPORT INFORMATION
  Report Type: 
  Country: None (occurrence: None)
  Receive Date: 20060414
  Receipt Date: 20060117
  Transmission Date: 20061013
  Serious: No
  Sender: FDA-Public Use
  Company Number: 2006SP000290

PATIENT
  Age: 52 Year
  Sex: 0
  Weight: 83.9154 kg

DRUGS (21)
  1. LUNESTA [Suspect]
     Indication: ANXIETY DISORDER
     Dosage: SEE IMAGE
     Route: 048
     Dates: start: 20050701, end: 20060103
  2. LUNESTA [Suspect]
     Indication: INSOMNIA
     Dosage: SEE IMAGE
     Route: 048
     Dates: start: 20050701, end: 20060103
  3. LUNESTA [Suspect]
     Indication: ANXIETY DISORDER
     Dosage: SEE IMAGE
     Route: 048
     Dates: start: 20050701, end: 20060103
  4. LUNESTA [Suspect]
     Indication: INSOMNIA
     Dosage: SEE IMAGE
     Route: 048
     Dates: start: 20050701, end: 20060103
  5. LUNESTA [Suspect]
     Indication: ANXIETY DISORDER
     Dosage: SEE IMAGE
     Route: 048
     Dates: start: 20050701, end: 20060103
  6. LUNESTA [Suspect]
     Indication: INSOMNIA
     Dosage: SEE IMAGE
     Route: 048
     Dates: start: 20050701, end: 20060103
  7. LUNESTA [Suspect]
     Indication: ANXIETY DISORDER
     Dosage: SEE IMAGE
     Route: 048
     Dates: start: 20050701, end: 20060103
  8. LUNESTA [Suspect]
     Indication: INSOMNIA
     Dosage: SEE IMAGE
     Route: 048
     Dates: start: 20050701, end: 20060103
  9. ACTOS [Concomitant]
  10. GLYBURIDE [Concomitant]
  11. METFORMIN [Concomitant]
  12. LANTUS [Concomitant]
  13. LEXAPRO [Concomitant]
  14. LORAZEPAM [Concomitant]
  15. LAMICTAL [Concomitant]
  16. TRICOR [Concomitant]
  17. CRESTOR [Concomitant]
  18. DOXAZOSIN [Concomitant]
  19. LISINOPRIL [Concomitant]
  20. HYDROCHLOROTHIAZIDE [Concomitant]
  21. AMBIEN [Concomitant]

REACTIONS (1)
  - DRUG EFFECT DECREASED [None]
